FAERS Safety Report 5132327-2 (Version None)
Quarter: 2006Q4

REPORT INFORMATION
  Report Type: 
  Country: None (occurrence: None)
  Receive Date: 20061023
  Receipt Date: 20060901
  Transmission Date: 20070319
  Serious: Yes (Death)
  Sender: FDA-Public Use
  Company Number: PHMT2006CA01749

PATIENT
  Age: 63 Year
  Sex: Male

DRUGS (3)
  1. CLOZARIL [Suspect]
     Indication: SCHIZOPHRENIA
     Dosage: 400 MG DAILY
     Route: 048
     Dates: start: 20060803, end: 20060820
  2. GLYBURIDE [Concomitant]
     Dosage: 2.5 MG QAM AND 5 MG QPM
  3. SYNTHROID [Concomitant]
     Dosage: 0.075 UG QAM

REACTIONS (6)
  - ABDOMINAL DISTENSION [None]
  - CONSTIPATION [None]
  - GENERAL PHYSICAL HEALTH DETERIORATION [None]
  - INTESTINAL OBSTRUCTION [None]
  - LAPAROTOMY [None]
  - SHOCK [None]
